FAERS Safety Report 13643151 (Version 2)
Quarter: 2017Q2

REPORT INFORMATION
  Report Type: Report from Study
  Country: US (occurrence: US)
  Receive Date: 20170612
  Receipt Date: 20170619
  Transmission Date: 20170830
  Serious: Yes (Other)
  Sender: FDA-Public Use
  Company Number: US-ASTELLAS-2017US023217

PATIENT
  Age: 62 Year
  Sex: Female

DRUGS (6)
  1. XGEVA [Concomitant]
     Active Substance: DENOSUMAB
     Indication: NEOPLASM MALIGNANT
     Dosage: UNK UNK, UNKNOWN FREQ.
     Route: 030
     Dates: start: 201703
  2. LEVOTHYROXINE. [Concomitant]
     Active Substance: LEVOTHYROXINE
     Route: 048
  3. ERLOTINIB [Suspect]
     Active Substance: ERLOTINIB
     Indication: NON-SMALL CELL LUNG CANCER
     Route: 048
     Dates: start: 201704
  4. LEVOTHYROXINE. [Concomitant]
     Active Substance: LEVOTHYROXINE
     Indication: THYROID DISORDER
     Route: 048
  5. AVASTIN [Suspect]
     Active Substance: BEVACIZUMAB
     Indication: LUNG NEOPLASM MALIGNANT
     Dosage: UNK, EVERY 3 WEEKS
     Route: 042
     Dates: start: 201703
  6. AVASTIN [Suspect]
     Active Substance: BEVACIZUMAB
     Dosage: UNK, EVERY 3 WEEKS
     Route: 042

REACTIONS (13)
  - Rash macular [Not Recovered/Not Resolved]
  - Hypertension [Recovering/Resolving]
  - Nail bed bleeding [Not Recovered/Not Resolved]
  - Weight decreased [Not Recovered/Not Resolved]
  - Pulmonary oedema [Recovered/Resolved]
  - Alopecia [Unknown]
  - Dysgeusia [Recovering/Resolving]
  - Eye swelling [Not Recovered/Not Resolved]
  - Somnolence [Unknown]
  - Decreased appetite [Recovering/Resolving]
  - Ill-defined disorder [Not Recovered/Not Resolved]
  - Nausea [Not Recovered/Not Resolved]
  - Eye pain [Not Recovered/Not Resolved]

NARRATIVE: CASE EVENT DATE: 201703
